FAERS Safety Report 6883734-9 (Version None)
Quarter: 2010Q3

REPORT INFORMATION
  Report Type: 
  Country: None (occurrence: None)
  Receive Date: 20100729
  Receipt Date: 20100722
  Transmission Date: 20110219
  Serious: Yes (Other)
  Sender: FDA-Public Use
  Company Number: A0872757A

PATIENT
  Sex: Male

DRUGS (2)
  1. TYKERB [Suspect]
     Indication: PRODUCT USED FOR UNKNOWN INDICATION
     Dosage: 1250MGD PER DAY
     Route: 048
     Dates: start: 20100329, end: 20100715
  2. XELODA [Suspect]
     Indication: PRODUCT USED FOR UNKNOWN INDICATION
     Dates: start: 20100329, end: 20100715

REACTIONS (2)
  - DISEASE PROGRESSION [None]
  - NEOPLASM [None]
